FAERS Safety Report 7992940-1 (Version None)
Quarter: 2011Q4

REPORT INFORMATION
  Report Type: 
  Country: None (occurrence: None)
  Receive Date: 20111219
  Receipt Date: 20110319
  Transmission Date: 20120403
  Serious: No
  Sender: FDA-Public Use
  Company Number: US-ASTRAZENECA-2011SE15592

PATIENT
  Sex: Female

DRUGS (9)
  1. SIMVASTATIN [Suspect]
     Dosage: HIGH DOSE
  2. SIMVASTATIN [Suspect]
     Dosage: MODERATE DOSE
  3. ATORVASTATIN [Suspect]
     Indication: DYSLIPIDAEMIA
     Dosage: LOW DOSE
  4. ROSUVASTATIN [Suspect]
     Dosage: MODERATE DOSE
     Route: 048
  5. SIMVASTATIN [Suspect]
     Indication: DYSLIPIDAEMIA
     Dosage: LOW DOSE
  6. ATORVASTATIN [Suspect]
     Dosage: HIGH DOSE
  7. ROSUVASTATIN [Suspect]
     Indication: DYSLIPIDAEMIA
     Dosage: LOW DOSE
     Route: 048
  8. ROSUVASTATIN [Suspect]
     Dosage: HIGH DOSE
     Route: 048
  9. ATORVASTATIN [Suspect]
     Dosage: MODERATE DOSE

REACTIONS (9)
  - MYALGIA [None]
  - ALANINE AMINOTRANSFERASE INCREASED [None]
  - ASPARTATE AMINOTRANSFERASE INCREASED [None]
  - BLOOD CREATININE INCREASED [None]
  - DYSPEPSIA [None]
  - ARTHRALGIA [None]
  - BLOOD CREATINE PHOSPHOKINASE INCREASED [None]
  - HEADACHE [None]
  - NAUSEA [None]
